FAERS Safety Report 9440570 (Version 1)
Quarter: 2013Q3

REPORT INFORMATION
  Report Type: Spontaneous
  Country: US (occurrence: US)
  Receive Date: 20130805
  Receipt Date: 20130805
  Transmission Date: 20140515
  Serious: No
  Sender: FDA-Public Use
  Company Number: US-009507513-1308USA001152

PATIENT
  Age: 3 Year
  Sex: Female

DRUGS (1)
  1. HOMOSALATE\OCTINOXATE\OCTISALATE\OXYBENZONE [Suspect]
     Indication: PRODUCT USED FOR UNKNOWN INDICATION
     Dosage: UNK, UNKNOWN
     Route: 061

REACTIONS (2)
  - Application site pain [Unknown]
  - Accidental exposure to product [Unknown]
